FAERS Safety Report 9767640 (Version 5)
Quarter: 2014Q1

REPORT INFORMATION
  Report Type: Spontaneous
  Country: US (occurrence: US)
  Receive Date: 20131217
  Receipt Date: 20140212
  Transmission Date: 20141002
  Serious: Yes (Other)
  Sender: FDA-Public Use
  Company Number: PHEH2013US025400

PATIENT
  Sex: Female

DRUGS (8)
  1. TEGRETOL-XR [Suspect]
     Indication: CONVULSION
     Dosage: 400 MG, BID
  2. TEGRETOL-XR [Suspect]
     Dosage: 200 MG, QID (FOUR TIMES)
  3. TEGRETOL-XR [Suspect]
     Dosage: 800 MG, BID
  4. TOPAMAX [Concomitant]
     Dosage: UNK UKN, UNK
  5. PROVENTIL [Concomitant]
     Dosage: UNK UKN, UNK
  6. FLOVENT [Concomitant]
     Dosage: UNK UKN, UNK
  7. IBUPROFEN [Concomitant]
     Dosage: UNK UKN, UNK
  8. VICODIN [Concomitant]
     Dosage: UNK UKN, UNK

REACTIONS (4)
  - Disturbance in attention [Unknown]
  - General physical condition abnormal [Unknown]
  - Amnesia [Unknown]
  - Convulsion [Recovered/Resolved]
